FAERS Safety Report 24544173 (Version 1)
Quarter: 2024Q4

REPORT INFORMATION
  Report Type: Spontaneous
  Country: US (occurrence: US)
  Receive Date: 20241024
  Receipt Date: 20241024
  Transmission Date: 20250115
  Serious: Yes (Life-Threatening, Hospitalization)
  Sender: MYLAN
  Company Number: US-MYLANLABS-2024M1095602

PATIENT
  Age: 65 Year
  Sex: Female

DRUGS (12)
  1. PREDNISONE [Suspect]
     Active Substance: PREDNISONE
     Indication: Ventricular tachycardia
     Dosage: 60 MILLIGRAM, QD
     Route: 065
  2. PREDNISONE [Suspect]
     Active Substance: PREDNISONE
     Indication: Giant cell myocarditis
  3. CYCLOSPORINE [Suspect]
     Active Substance: CYCLOSPORINE
     Indication: Ventricular tachycardia
     Dosage: 75 MILLIGRAM, BID
     Route: 065
  4. CYCLOSPORINE [Suspect]
     Active Substance: CYCLOSPORINE
     Indication: Giant cell myocarditis
     Dosage: UNK, DOSE TAPERED
     Route: 065
  5. METHYLPREDNISOLONE [Suspect]
     Active Substance: METHYLPREDNISOLONE
     Indication: Ventricular tachycardia
     Dosage: 1 GRAM
     Route: 042
  6. METHYLPREDNISOLONE [Suspect]
     Active Substance: METHYLPREDNISOLONE
     Indication: Giant cell myocarditis
  7. AZATHIOPRINE [Suspect]
     Active Substance: AZATHIOPRINE
     Indication: Ventricular tachycardia
     Dosage: 200 MILLIGRAM, QD, (1.5 MG/KG)
     Route: 065
  8. AZATHIOPRINE [Suspect]
     Active Substance: AZATHIOPRINE
     Indication: Giant cell myocarditis
  9. AMIODARONE [Concomitant]
     Active Substance: AMIODARONE
     Indication: Ventricular tachycardia
     Dosage: UNK
     Route: 042
  10. AMIODARONE [Concomitant]
     Active Substance: AMIODARONE
     Indication: Giant cell myocarditis
  11. AMIODARONE [Suspect]
     Active Substance: AMIODARONE
     Indication: Ventricular tachycardia
     Dosage: 200 MILLIGRAM, QD
     Route: 048
  12. AMIODARONE [Suspect]
     Active Substance: AMIODARONE
     Indication: Giant cell myocarditis

REACTIONS (3)
  - Cardiac failure [Unknown]
  - Opportunistic infection [Unknown]
  - Off label use [Unknown]
